FAERS Safety Report 12426909 (Version 1)
Quarter: 2016Q2

REPORT INFORMATION
  Report Type: Spontaneous
  Country: FR (occurrence: FR)
  Receive Date: 20160601
  Receipt Date: 20160601
  Transmission Date: 20160815
  Serious: Yes (Life-Threatening, Hospitalization)
  Sender: FDA-Public Use
  Company Number: FR-009507513-1605FRA014599

PATIENT
  Sex: Male
  Weight: 73 kg

DRUGS (9)
  1. CACIT VITAMINE D3 [Concomitant]
     Active Substance: CALCIUM CARBONATE\CHOLECALCIFEROL
     Dosage: 1 DF, QD
  2. PARIET [Concomitant]
     Active Substance: RABEPRAZOLE SODIUM
     Dosage: 10 MG, QD
  3. KEYTRUDA [Suspect]
     Active Substance: PEMBROLIZUMAB
     Indication: METASTATIC MALIGNANT MELANOMA
     Dosage: 1 CYCLE
     Route: 042
     Dates: start: 20150724
  4. KEYTRUDA [Suspect]
     Active Substance: PEMBROLIZUMAB
     Dosage: 3 CYCLE
     Route: 042
     Dates: start: 20150911
  5. DUPHALAC [Concomitant]
     Active Substance: LACTULOSE
     Dosage: 15 MG, QD
  6. CORTANCYL [Concomitant]
     Active Substance: PREDNISONE
     Dosage: 30 MG, QAM
  7. KEYTRUDA [Suspect]
     Active Substance: PEMBROLIZUMAB
     Dosage: 2 CYCLE
     Route: 042
     Dates: start: 201508
  8. KEYTRUDA [Suspect]
     Active Substance: PEMBROLIZUMAB
     Dosage: 4 CYCLE
     Route: 042
     Dates: start: 20151009
  9. VENTOLIN [Concomitant]
     Active Substance: ALBUTEROL SULFATE
     Dosage: 2 PUFF IF NEEDED

REACTIONS (2)
  - Interstitial lung disease [Not Recovered/Not Resolved]
  - Respiratory distress [Not Recovered/Not Resolved]
